FAERS Safety Report 7415912-4 (Version None)
Quarter: 2011Q2

REPORT INFORMATION
  Report Type: 
  Country: None (occurrence: None)
  Receive Date: 20110414
  Receipt Date: 20110407
  Transmission Date: 20111010
  Serious: Yes (Other)
  Sender: FDA-Public Use
  Company Number: US-SANOFI-AVENTIS-2011SA021829

PATIENT
  Age: 70 Year
  Sex: Male

DRUGS (3)
  1. CARDIAC THERAPY [Concomitant]
  2. ANTIHYPERTENSIVES [Concomitant]
  3. LANTUS [Suspect]
     Indication: TYPE 2 DIABETES MELLITUS
     Dosage: DOSE:54 UNIT(S)
     Route: 058

REACTIONS (1)
  - CARDIAC OPERATION [None]
